FAERS Safety Report 5958430-2 (Version None)
Quarter: 2008Q4

REPORT INFORMATION
  Report Type: 
  Country: None (occurrence: None)
  Receive Date: 20081119
  Receipt Date: 20081110
  Transmission Date: 20090506
  Serious: Yes (Hospitalization)
  Sender: FDA-Public Use
  Company Number: SE-JNJFOC-20081102597

PATIENT
  Sex: Male

DRUGS (12)
  1. REMINYL [Suspect]
     Indication: DEMENTIA ALZHEIMER'S TYPE
     Route: 048
  2. PERSANTINE [Suspect]
     Indication: THROMBOSIS
     Route: 048
  3. SERTALIN [Suspect]
     Indication: DEPRESSION
     Route: 048
  4. ASPIRIN [Suspect]
     Indication: THROMBOSIS
     Route: 048
  5. XALATAN [Concomitant]
     Route: 065
  6. SIMVASTATIN [Concomitant]
     Route: 065
  7. ZOPIKLON [Concomitant]
     Route: 065
  8. COSOPT [Concomitant]
     Route: 065
  9. FOLACIN [Concomitant]
     Route: 048
  10. BETOLVEX [Concomitant]
     Route: 048
  11. PILOKARPIN [Concomitant]
     Route: 065
  12. METOPROLOL TARTRATE [Concomitant]
     Route: 048

REACTIONS (1)
  - GASTRIC ULCER HAEMORRHAGE [None]
